FAERS Safety Report 10383479 (Version 3)
Quarter: 2014Q4

REPORT INFORMATION
  Report Type: Spontaneous
  Country: US (occurrence: US)
  Receive Date: 20140814
  Receipt Date: 20141028
  Transmission Date: 20150528
  Serious: Yes (Other)
  Sender: FDA-Public Use
  Company Number: US-AMGEN-USASP2014055914

PATIENT
  Age: 65 Year
  Sex: Male
  Weight: 103 kg

DRUGS (14)
  1. PROLIA [Suspect]
     Active Substance: DENOSUMAB
     Indication: OSTEOPOROSIS
     Dosage: 60 MG, Q6MO
     Route: 058
     Dates: start: 20130327
  2. METOPROLOL TARTRATE. [Concomitant]
     Active Substance: METOPROLOL TARTRATE
     Dosage: 50 MG, 1 TAB DAILY UNK
     Route: 048
  3. OMEPRAZOLE. [Concomitant]
     Active Substance: OMEPRAZOLE
     Dosage: 20 MG, 1 DAILY
     Route: 048
  4. SIMVASTATIN. [Concomitant]
     Active Substance: SIMVASTATIN
     Dosage: 10 MG, 1 DAILYUNK
     Route: 048
  5. COQ 10 [Concomitant]
     Active Substance: UBIDECARENONE
     Dosage: 200 MG, UNK
     Route: 048
  6. LEVOTHYROXINE SODIUM. [Concomitant]
     Active Substance: LEVOTHYROXINE SODIUM
     Dosage: 88 MUG, 1 DAILYUNK
     Route: 048
  7. OMEGA-3                            /01866101/ [Concomitant]
     Dosage: 1000 MG,1 DAILY UNK
     Route: 048
  8. ALFUZOSIN HCL [Concomitant]
     Active Substance: ALFUZOSIN HYDROCHLORIDE
     Dosage: 10 MG (ONE TABLET BY MOUTH EVERY EVENING)
     Route: 048
  9. CYCLOBENZAPRINE HCL [Concomitant]
     Active Substance: CYCLOBENZAPRINE HYDROCHLORIDE
     Dosage: 10 MG,1 TAB PRN UNK
     Route: 048
  10. ASPIRIN                            /00002701/ [Concomitant]
     Active Substance: ASPIRIN
     Dosage: 325 MG, UNK
     Route: 048
  11. CITRACAL + D                       /01438101/ [Concomitant]
     Dosage: UNK
     Route: 048
  12. TESTIM [Concomitant]
     Active Substance: TESTOSTERONE
     Dosage: 50 MG/5 GRAM (1%) GELUNK
     Route: 061
  13. HAWTHORN BERRY [Concomitant]
     Dosage: 500 MG, UNK
     Route: 048
  14. VITAMIN D3 [Concomitant]
     Active Substance: CHOLECALCIFEROL
     Dosage: 1000 2 TAB DAILYUNK, UNK
     Route: 048

REACTIONS (10)
  - Varicocele [Unknown]
  - Hypertension [Unknown]
  - Vision blurred [Unknown]
  - Benign prostatic hyperplasia [Unknown]
  - Eczema [Recovered/Resolved]
  - Urinary retention [Unknown]
  - Sluggishness [Unknown]
  - Back pain [Unknown]
  - Diverticulitis [Unknown]
  - Bone pain [Recovering/Resolving]

NARRATIVE: CASE EVENT DATE: 20130327
